FAERS Safety Report 16498027 (Version 2)
Quarter: 2019Q3

REPORT INFORMATION
  Report Type: Report from Study
  Country: FR (occurrence: FR)
  Receive Date: 20190628
  Receipt Date: 20190705
  Transmission Date: 20191004
  Serious: Yes (Death, Other)
  Sender: FDA-Public Use
  Company Number: FR-JAZZ-2019-FR-008933

PATIENT

DRUGS (1)
  1. DEFITELIO [Suspect]
     Active Substance: DEFIBROTIDE SODIUM
     Indication: PROPHYLAXIS
     Dosage: UNK
     Dates: start: 20170626, end: 20170720

REACTIONS (7)
  - Multiple organ dysfunction syndrome [Unknown]
  - Death [Fatal]
  - Sepsis [Unknown]
  - Haemorrhage [Unknown]
  - Embolism [Unknown]
  - Off label use [Unknown]
  - Graft versus host disease in gastrointestinal tract [Unknown]

NARRATIVE: CASE EVENT DATE: 20170626
